FAERS Safety Report 6270232-9 (Version None)
Quarter: 2009Q3

REPORT INFORMATION
  Report Type: 
  Country: None (occurrence: None)
  Receive Date: 20090716
  Receipt Date: 20090617
  Transmission Date: 20100115
  Serious: No
  Sender: FDA-Public Use
  Company Number: US-BAYER-200924695NA

PATIENT
  Age: 42 Year
  Sex: Female
  Weight: 86 kg

DRUGS (1)
  1. MAGNEVIST PHARMACY BULK PACK [Suspect]
     Indication: NUCLEAR MAGNETIC RESONANCE IMAGING THORACIC
     Dosage: TOTAL DAILY DOSE: 17 ML
     Route: 042
     Dates: start: 20090617, end: 20090617

REACTIONS (2)
  - FEELING HOT [None]
  - TONGUE DISORDER [None]
